FAERS Safety Report 5428412-8 (Version None)
Quarter: 2007Q3

REPORT INFORMATION
  Report Type: 
  Country: None (occurrence: None)
  Receive Date: 20070828
  Receipt Date: 20070817
  Transmission Date: 20080115
  Serious: Yes (Hospitalization)
  Sender: FDA-Public Use
  Company Number: FR-MERCK-0708FRA00029

PATIENT
  Age: 69 Year
  Sex: Female

DRUGS (6)
  1. CANCIDAS [Suspect]
     Indication: CANDIDIASIS
     Route: 042
     Dates: start: 20070625, end: 20070702
  2. CANCIDAS [Suspect]
     Route: 042
     Dates: start: 20070624, end: 20070624
  3. ESOMEPRAZOLE MAGNESIUM [Suspect]
     Route: 042
     Dates: start: 20070614, end: 20070702
  4. AMIODARONE [Suspect]
     Route: 042
     Dates: start: 20070614, end: 20070702
  5. DANAPAROID SODIUM [Suspect]
     Indication: THROMBOSIS PROPHYLAXIS
     Route: 060
     Dates: start: 20070618, end: 20070702
  6. NEFOPAM HYDROCHLORIDE [Suspect]
     Route: 042
     Dates: end: 20070702

REACTIONS (1)
  - STEVENS-JOHNSON SYNDROME [None]
